FAERS Safety Report 13539180 (Version 2)
Quarter: 2018Q2

REPORT INFORMATION
  Report Type: Spontaneous
  Country: US (occurrence: US)
  Receive Date: 20170512
  Receipt Date: 20180522
  Transmission Date: 20180711
  Serious: Yes (Hospitalization, Other)
  Sender: FDA-Public Use
  Company Number: US-WEST-WARD PHARMACEUTICALS CORP.-US-H14001-17-01485

PATIENT
  Age: 67 Year
  Sex: Male

DRUGS (2)
  1. CEFAZOLIN [Suspect]
     Active Substance: CEFAZOLIN
     Indication: STAPHYLOCOCCAL INFECTION
     Route: 042
  2. CEFAZOLIN [Suspect]
     Active Substance: CEFAZOLIN
     Indication: BACTERAEMIA

REACTIONS (9)
  - Activated partial thromboplastin time prolonged [Unknown]
  - Coagulopathy [Recovered/Resolved]
  - Prothrombin time prolonged [Unknown]
  - Tubulointerstitial nephritis [Recovering/Resolving]
  - International normalised ratio increased [Unknown]
  - Proteinuria [Recovering/Resolving]
  - Eosinophilia [Recovering/Resolving]
  - Acute kidney injury [Recovering/Resolving]
  - Ascites [Unknown]
